FAERS Safety Report 7768372-8 (Version None)
Quarter: 2011Q3

REPORT INFORMATION
  Report Type: 
  Country: None (occurrence: None)
  Receive Date: 20110922
  Receipt Date: 20110307
  Transmission Date: 20111222
  Serious: Yes (Other)
  Sender: FDA-Public Use
  Company Number: US-ASTRAZENECA-2011SE12390

PATIENT
  Sex: Male

DRUGS (4)
  1. ZYPREXA [Suspect]
     Route: 048
  2. BENZTROPINE MESYLATE [Concomitant]
  3. SEROQUEL [Suspect]
     Route: 048
     Dates: start: 20050818
  4. RISPERDAL [Suspect]
     Route: 048
     Dates: start: 20070315, end: 20080508

REACTIONS (13)
  - PSYCHIATRIC DECOMPENSATION [None]
  - TARDIVE DYSKINESIA [None]
  - DYSTONIA [None]
  - PROTRUSION TONGUE [None]
  - NERVOUS SYSTEM DISORDER [None]
  - DYSKINESIA [None]
  - HYPERPROLACTINAEMIA [None]
  - PROLACTINOMA [None]
  - AKATHISIA [None]
  - SUICIDAL IDEATION [None]
  - GYNAECOMASTIA [None]
  - BLEPHAROSPASM [None]
  - BREAST TENDERNESS [None]
